FAERS Safety Report 8841756 (Version 1)
Quarter: 2012Q4

REPORT INFORMATION
  Report Type: 
  Country: US (occurrence: US)
  Receive Date: 20121016
  Receipt Date: 20121016
  Transmission Date: 20130627
  Serious: Yes (Hospitalization, Other)
  Sender: FDA-Public Use
  Company Number: US-009507513-1210USA004490

PATIENT
  Sex: Male

DRUGS (3)
  1. PEG-INTRON [Suspect]
     Indication: HEPATITIS C
     Dosage: UNK
     Dates: start: 20120101
  2. REBETOL [Suspect]
     Indication: HEPATITIS C
     Dosage: UNK
     Dates: start: 20120101
  3. CORTISONE [Suspect]

REACTIONS (12)
  - White blood cell count decreased [Unknown]
  - Hypoaesthesia [Unknown]
  - Dry skin [Unknown]
  - Nausea [Unknown]
  - Fatigue [Unknown]
  - Influenza like illness [Unknown]
  - Chills [Unknown]
  - Injection site erythema [Unknown]
  - Insomnia [Unknown]
  - Dyspnoea [Unknown]
  - Back pain [Unknown]
  - Urticaria [Unknown]
